FAERS Safety Report 9643414 (Version 2)
Quarter: 2013Q4

REPORT INFORMATION
  Report Type: Report from Study
  Country: US (occurrence: US)
  Receive Date: 20131024
  Receipt Date: 20131107
  Transmission Date: 20140711
  Serious: Yes (Hospitalization, Other)
  Sender: FDA-Public Use
  Company Number: US-ACTELION-A-NJ2013-89944

PATIENT
  Age: 48 Year
  Sex: Female

DRUGS (10)
  1. TRACLEER [Suspect]
     Indication: PULMONARY ARTERIAL HYPERTENSION
     Dosage: 125 MG, BID
     Route: 048
     Dates: start: 2008, end: 20131014
  2. TRACLEER [Suspect]
     Dosage: UNK
     Route: 048
     Dates: start: 2008, end: 2008
  3. POTASSIUM [Concomitant]
     Dosage: UNK
     Dates: start: 201310
  4. DOCQLACE [Concomitant]
     Dosage: 100 MG, QD
     Dates: start: 2013
  5. FUROSEMIDE [Concomitant]
     Dosage: 40 MG, BID
     Dates: start: 2010
  6. METOLAZONE [Concomitant]
     Dosage: 5 MG, QD
     Dates: start: 2010
  7. DIGOXIN [Concomitant]
     Dosage: 0.125 MG, QD
     Dates: start: 2010
  8. OMEPRAZOLE [Concomitant]
     Dosage: 20 MG, BID
     Dates: start: 2010
  9. MAGNESIUM [Concomitant]
     Dosage: UNK
     Dates: start: 201310
  10. CIALIS [Concomitant]
     Dosage: UNK

REACTIONS (8)
  - Dehydration [Unknown]
  - Liver injury [Recovering/Resolving]
  - Alanine aminotransferase increased [Recovering/Resolving]
  - Aspartate aminotransferase increased [Recovering/Resolving]
  - Blood alkaline phosphatase increased [Recovering/Resolving]
  - Blood bilirubin increased [Recovering/Resolving]
  - Jaundice [Recovering/Resolving]
  - Chromaturia [Recovering/Resolving]
